FAERS Safety Report 6996912-5 (Version None)
Quarter: 2010Q3

REPORT INFORMATION
  Report Type: 
  Country: None (occurrence: None)
  Receive Date: 20100918
  Receipt Date: 20090914
  Transmission Date: 20110219
  Serious: No
  Sender: FDA-Public Use
  Company Number: US-WYE-H10547209

PATIENT
  Sex: Female
  Weight: 81.72 kg

DRUGS (5)
  1. PRISTIQ [Suspect]
     Indication: ANXIETY
     Route: 048
     Dates: start: 20090615, end: 20090720
  2. ACETAMINOPHEN WITH PROPOXYPHENE HCL TAB [Concomitant]
  3. BACLOFEN [Concomitant]
  4. XANAX [Concomitant]
  5. BETASERON [Concomitant]

REACTIONS (5)
  - CONSTIPATION [None]
  - DIZZINESS [None]
  - HEADACHE [None]
  - INSOMNIA [None]
  - NAUSEA [None]
